FAERS Safety Report 13010356 (Version 1)
Quarter: 2016Q4

REPORT INFORMATION
  Report Type: Spontaneous
  Country: US (occurrence: US)
  Receive Date: 20161207
  Receipt Date: 20161207
  Transmission Date: 20170207
  Serious: Yes (Other)
  Sender: FDA-Public Use
  Company Number: None

PATIENT
  Age: 62 Year
  Sex: Female

DRUGS (1)
  1. TRINTELLIX [Suspect]
     Active Substance: VORTIOXETINE HYDROBROMIDE
     Indication: DEPRESSION
     Route: 048
     Dates: start: 20161206, end: 20161207

REACTIONS (7)
  - Dizziness [None]
  - Somnolence [None]
  - Mental impairment [None]
  - Hypersomnia [None]
  - Balance disorder [None]
  - Disorientation [None]
  - Disturbance in attention [None]

NARRATIVE: CASE EVENT DATE: 20161207
